FAERS Safety Report 11856807 (Version 3)
Quarter: 2016Q1

REPORT INFORMATION
  Report Type: Spontaneous
  Country: JP (occurrence: JP)
  Receive Date: 20151221
  Receipt Date: 20160107
  Transmission Date: 20160526
  Serious: Yes (Hospitalization, Disabling, Other)
  Sender: FDA-Public Use
  Company Number: JP-B.I. PHARMACEUTICALS,INC./RIDGEFIELD-2015-BI-13852NB

PATIENT
  Age: 79 Year
  Sex: Male
  Weight: 65 kg

DRUGS (9)
  1. GILOTRIF [Suspect]
     Active Substance: AFATINIB
     Indication: NON-SMALL CELL LUNG CANCER
     Dosage: 40 MG
     Route: 048
     Dates: start: 20150202, end: 20150306
  2. HOKUNALIN:TAPE [Concomitant]
     Active Substance: TULOBUTEROL
     Indication: PRODUCT USED FOR UNKNOWN INDICATION
     Dosage: 1 MG
     Route: 062
     Dates: start: 20141008
  3. DESPA [Concomitant]
     Indication: PRODUCT USED FOR UNKNOWN INDICATION
     Dosage: 1 G
     Route: 062
     Dates: start: 20150213
  4. ADONA [Concomitant]
     Active Substance: CARBAZOCHROME SODIUM SULFONATE
     Indication: PRODUCT USED FOR UNKNOWN INDICATION
     Dosage: 30 G
     Route: 048
     Dates: start: 20150218, end: 20150305
  5. NAIXAN [Concomitant]
     Active Substance: NAPROXEN SODIUM
     Indication: PRODUCT USED FOR UNKNOWN INDICATION
     Dosage: 30 G
     Route: 048
     Dates: start: 20150218, end: 20150312
  6. MEDICON [Concomitant]
     Active Substance: DEXTROMETHORPHAN HYDROBROMIDE
     Indication: PRODUCT USED FOR UNKNOWN INDICATION
     Dosage: 15 MG
     Route: 048
     Dates: start: 20140207
  7. GILOTRIF [Suspect]
     Active Substance: AFATINIB
     Dosage: 40 MG/5 DAYS A WEEK
     Route: 048
     Dates: start: 20150221, end: 20150306
  8. UNITALC [Suspect]
     Active Substance: TALC
     Indication: PLEURAL ADHESION
     Route: 065
     Dates: start: 20150129
  9. THEOLONG [Concomitant]
     Active Substance: THEOPHYLLINE ANHYDROUS
     Indication: PRODUCT USED FOR UNKNOWN INDICATION
     Dosage: 100 G
     Route: 048
     Dates: start: 20141008

REACTIONS (4)
  - Pneumothorax [Unknown]
  - Rash [Unknown]
  - Diarrhoea [Not Recovered/Not Resolved]
  - Interstitial lung disease [Recovered/Resolved with Sequelae]

NARRATIVE: CASE EVENT DATE: 20150221
